FAERS Safety Report 7510312-0 (Version None)
Quarter: 2011Q2

REPORT INFORMATION
  Report Type: 
  Country: None (occurrence: None)
  Receive Date: 20110527
  Receipt Date: 20110518
  Transmission Date: 20111010
  Serious: Yes (Hospitalization, Other)
  Sender: FDA-Public Use
  Company Number: US-ASTRAZENECA-2011SE22503

PATIENT
  Age: 58 Year
  Sex: Female
  Weight: 98.9 kg

DRUGS (30)
  1. SEROQUEL [Suspect]
     Route: 048
  2. DEPAKOTE [Concomitant]
     Indication: BIPOLAR DISORDER
     Route: 048
  3. PRAVASTATIN [Concomitant]
     Indication: HYPERCHOLESTEROLAEMIA
     Route: 048
  4. SINEMET [Concomitant]
     Route: 048
  5. SEROQUEL [Suspect]
     Route: 048
  6. HUMALOG PEN [Concomitant]
     Indication: TYPE 2 DIABETES MELLITUS
     Dosage: TOTAL DAILY DOSE 75 MG, 25 MG BID
     Route: 058
  7. NUERONTIN [Concomitant]
  8. LEVOTHYROXINE SODIUM [Concomitant]
     Indication: THYROID DISORDER
     Dosage: 50 MCG QAM
     Route: 048
  9. VITAMIN D [Concomitant]
  10. SINEMET [Concomitant]
     Indication: PARKINSON'S DISEASE
     Route: 048
  11. LEXAPRO [Concomitant]
     Indication: DEPRESSION
     Dosage: 40 MG QAM
     Route: 048
  12. SEROQUEL [Suspect]
     Route: 048
  13. REQUIP [Concomitant]
     Indication: PARKINSON'S DISEASE
     Route: 048
  14. REQUIP [Concomitant]
     Route: 048
  15. CITALOPRAM HYDROBROMIDE [Concomitant]
     Indication: DEPRESSION
  16. FLOMAX [Concomitant]
     Indication: BLADDER DISORDER
  17. CALCIUM CARBONATE [Concomitant]
  18. SEROQUEL [Suspect]
     Indication: BIPOLAR DISORDER
     Route: 048
     Dates: start: 19810101, end: 20110425
  19. GENERIC VESICAR [Concomitant]
  20. TWO OTHER VITAMINS [Concomitant]
  21. SEROQUEL [Suspect]
     Route: 048
  22. REQUIP [Concomitant]
     Indication: RESTLESS LEGS SYNDROME
     Route: 048
  23. VESICARE [Concomitant]
     Route: 048
  24. REQUIP [Concomitant]
     Route: 048
  25. PRIMIDONE [Concomitant]
     Indication: PARKINSON'S DISEASE
     Route: 048
  26. MULTI-VITAMINS [Concomitant]
  27. CARBIDOPA [Concomitant]
     Indication: PARKINSON'S DISEASE
  28. SEROQUEL [Suspect]
     Indication: SLEEP DISORDER
     Route: 048
     Dates: start: 19810101, end: 20110425
  29. FAMOTIDINE [Concomitant]
     Dosage: 20 MG QAM
     Route: 048
  30. GABAPENTIN [Concomitant]
     Indication: NEUROPATHY PERIPHERAL
     Route: 048

REACTIONS (31)
  - ABASIA [None]
  - CHOLELITHIASIS [None]
  - BLADDER DISORDER [None]
  - SINUSITIS [None]
  - FRACTURED COCCYX [None]
  - DRUG DOSE OMISSION [None]
  - RENAL FAILURE [None]
  - DIARRHOEA [None]
  - SOMNOLENCE [None]
  - DIZZINESS [None]
  - GOITRE [None]
  - FATIGUE [None]
  - SURGERY [None]
  - DIABETES MELLITUS [None]
  - INTESTINAL FUNCTIONAL DISORDER [None]
  - WEIGHT DECREASED [None]
  - MANIA [None]
  - RESTLESS LEGS SYNDROME [None]
  - HYPERCHOLESTEROLAEMIA [None]
  - FALL [None]
  - ASTHENIA [None]
  - CHOLECYSTECTOMY [None]
  - COMA [None]
  - TOXICITY TO VARIOUS AGENTS [None]
  - DEHYDRATION [None]
  - MUSCULOSKELETAL DISCOMFORT [None]
  - HYSTERECTOMY [None]
  - INSOMNIA [None]
  - NEUROPATHY PERIPHERAL [None]
  - PARKINSON'S DISEASE [None]
  - PAIN [None]
